FAERS Safety Report 10249986 (Version 1)
Quarter: 2014Q2

REPORT INFORMATION
  Report Type: Spontaneous
  Country: CL (occurrence: CL)
  Receive Date: 20140620
  Receipt Date: 20140620
  Transmission Date: 20141212
  Serious: Yes (Other)
  Sender: FDA-Public Use
  Company Number: CL-PFIZER INC-2014165869

PATIENT
  Age: 75 Year
  Sex: Male

DRUGS (7)
  1. XALATAN [Suspect]
     Dosage: UNK
     Dates: start: 2009
  2. PERTIUM [Concomitant]
  3. AMLODIPINE [Concomitant]
  4. ASPIRIN ^BAYER^ [Concomitant]
  5. GIABRI [Concomitant]
  6. GLICENEX [Concomitant]
  7. ATORVASTATIN [Concomitant]
     Dosage: 10 MG, UNK

REACTIONS (1)
  - Arrhythmia [Unknown]
